FAERS Safety Report 22896726 (Version 2)
Quarter: 2023Q4

REPORT INFORMATION
  Report Type: Report from Study
  Country: US (occurrence: None)
  Receive Date: 20230901
  Receipt Date: 20231103
  Transmission Date: 20240110
  Serious: Yes (Death)
  Sender: FDA-Public Use
  Company Number: 2023A199631

PATIENT
  Age: 24249 Day
  Sex: Female

DRUGS (19)
  1. FARXIGA [Suspect]
     Active Substance: DAPAGLIFLOZIN PROPANEDIOL
     Route: 048
     Dates: start: 20230123
  2. ALBUTEROL [Concomitant]
     Active Substance: ALBUTEROL
  3. VITAMIN C [Concomitant]
     Active Substance: ASCORBIC ACID
  4. ASPIRIN [Concomitant]
     Active Substance: ASPIRIN
  5. CHOLECALCIFEROL [Concomitant]
     Active Substance: CHOLECALCIFEROL
  6. CYANOCOBALAMIN [Concomitant]
     Active Substance: CYANOCOBALAMIN
  7. DAPAGLIFLOZIN [Concomitant]
     Active Substance: DAPAGLIFLOZIN
  8. FLUOXETINE [Concomitant]
     Active Substance: FLUOXETINE HYDROCHLORIDE
  9. FLUOXETINE [Concomitant]
     Active Substance: FLUOXETINE HYDROCHLORIDE
  10. DEXTROSE [Concomitant]
     Active Substance: DEXTROSE\DEXTROSE MONOHYDRATE
  11. NOVOLOG [Concomitant]
     Active Substance: INSULIN ASPART
  12. ATROVENT HFA [Concomitant]
     Active Substance: IPRATROPIUM BROMIDE
  13. HYZAAR [Concomitant]
     Active Substance: HYDROCHLOROTHIAZIDE\LOSARTAN POTASSIUM
  14. MEVACOR [Concomitant]
     Active Substance: LOVASTATIN
  15. GLUCOPHAGE [Concomitant]
     Active Substance: METFORMIN HYDROCHLORIDE
  16. TOPROL XL [Concomitant]
     Active Substance: METOPROLOL SUCCINATE
  17. NITROSTAT [Concomitant]
     Active Substance: NITROGLYCERIN
  18. OMEGA-3 FATTY ACIDS [Concomitant]
     Active Substance: OMEGA-3 FATTY ACIDS
  19. TURMERIC [Concomitant]
     Active Substance: TURMERIC

REACTIONS (2)
  - Death [Fatal]
  - Thirst [Recovered/Resolved]

NARRATIVE: CASE EVENT DATE: 20230803
